FAERS Safety Report 17184751 (Version 1)
Quarter: 2019Q4

REPORT INFORMATION
  Report Type: Report from Study
  Country: US (occurrence: US)
  Receive Date: 20191220
  Receipt Date: 20191220
  Transmission Date: 20200122
  Serious: Yes (Hospitalization)
  Sender: FDA-Public Use
  Company Number: US-AVEXISPRA-CTR-AVXS12019-0033

PATIENT
  Age: 1 Year
  Sex: Female

DRUGS (4)
  1. AVXS-101 [Suspect]
     Active Substance: ONASEMNOGENE ABEPARVOVEC
     Indication: SPINAL MUSCULAR ATROPHY
     Dosage: 20.3 MILLILITER, SINGLE
     Route: 042
     Dates: start: 20190129, end: 20190129
  2. ALBUTEROL. [Concomitant]
     Active Substance: ALBUTEROL
  3. PULMOZYME [Concomitant]
     Active Substance: DORNASE ALFA
  4. VITAMIN D [Concomitant]
     Active Substance: VITAMIN D NOS

REACTIONS (1)
  - Enterovirus infection [Unknown]

NARRATIVE: CASE EVENT DATE: 20191119
